FAERS Safety Report 6418916-3 (Version None)
Quarter: 2009Q4

REPORT INFORMATION
  Report Type: 
  Country: None (occurrence: None)
  Receive Date: 20091028
  Receipt Date: 20091028
  Transmission Date: 20100525
  Serious: Yes (Life-Threatening, Hospitalization)
  Sender: FDA-Public Use
  Company Number: None

PATIENT
  Sex: Female

DRUGS (2)
  1. BACTRIM [Suspect]
     Indication: KIDNEY INFECTION
     Dates: start: 20090823, end: 20090827
  2. BACTRIM [Suspect]
     Indication: PROPHYLAXIS
     Dates: start: 20090823, end: 20090827

REACTIONS (1)
  - ANAPHYLACTIC SHOCK [None]
